FAERS Safety Report 10023374 (Version 1)
Quarter: 2014Q1

REPORT INFORMATION
  Report Type: Report from Study
  Country: JP (occurrence: JP)
  Receive Date: 20140320
  Receipt Date: 20140320
  Transmission Date: 20141002
  Serious: Yes (Other)
  Sender: FDA-Public Use
  Company Number: JP-ROCHE-1365436

PATIENT
  Sex: 0

DRUGS (2)
  1. VALGANCICLOVIR HYDROCHLORIDE [Suspect]
     Indication: CYTOMEGALOVIRUS INFECTION
     Dosage: FOR FIRST WEEK
     Route: 048
  2. VALGANCICLOVIR HYDROCHLORIDE [Suspect]
     Dosage: IN SECOND WEEK
     Route: 048

REACTIONS (2)
  - Neutropenia [Recovered/Resolved]
  - Febrile neutropenia [Recovered/Resolved]
